FAERS Safety Report 7280080-9 (Version None)
Quarter: 2011Q1

REPORT INFORMATION
  Report Type: 
  Country: None (occurrence: None)
  Receive Date: 20110208
  Receipt Date: 20110204
  Transmission Date: 20110831
  Serious: Yes (Death, Hospitalization)
  Sender: FDA-Public Use
  Company Number: US-B.I. PHARMACEUTICALS,INC./RIDGEFIELD-2011-BP-02143BP

PATIENT
  Sex: Female

DRUGS (14)
  1. PROPRANOLOL [Concomitant]
     Indication: HYPERTENSION
  2. CLARINEX [Concomitant]
     Indication: MULTIPLE ALLERGIES
  3. VERAPAMIL [Concomitant]
     Indication: HYPERTENSION
  4. SPIRIVA [Suspect]
     Indication: EMPHYSEMA
     Route: 055
  5. HYDROCHLOROTHIAZIDE [Concomitant]
     Indication: HYPERTENSION
  6. SPIRIVA [Suspect]
     Indication: CHRONIC OBSTRUCTIVE PULMONARY DISEASE
  7. EFFOXER [Concomitant]
     Indication: NERVE INJURY
  8. LISINOPRIL [Concomitant]
     Indication: HYPERTENSION
  9. PROTONIX [Concomitant]
     Indication: GASTROOESOPHAGEAL REFLUX DISEASE
  10. STOOL SOFTENER [Concomitant]
     Indication: CONSTIPATION
  11. LUTEIN [Concomitant]
     Indication: MACULAR DEGENERATION
  12. ZOCOR [Concomitant]
     Indication: BLOOD CHOLESTEROL INCREASED
  13. MOBIC [Concomitant]
     Indication: ARTHRITIS
  14. ASPIRIN [Concomitant]
     Indication: PAIN

REACTIONS (3)
  - CHRONIC OBSTRUCTIVE PULMONARY DISEASE [None]
  - EMPHYSEMA [None]
  - PNEUMONIA [None]
